FAERS Safety Report 6383115-0 (Version None)
Quarter: 2009Q3

REPORT INFORMATION
  Report Type: 
  Country: None (occurrence: None)
  Receive Date: 20090930
  Receipt Date: 20090922
  Transmission Date: 20100115
  Serious: Yes (Death)
  Sender: FDA-Public Use
  Company Number: BE-MERCK-0909BEL00012

PATIENT
  Age: 41 Year
  Sex: Male
  Weight: 77 kg

DRUGS (6)
  1. CANCIDAS [Suspect]
     Indication: FUNGAL INFECTION
     Route: 041
     Dates: start: 20081109, end: 20081111
  2. CANCIDAS [Suspect]
     Route: 041
     Dates: start: 20081108, end: 20081108
  3. FLUCONAZOLE [Concomitant]
     Indication: PROPHYLAXIS
     Route: 048
     Dates: start: 20080615, end: 20081107
  4. MEROPENEM [Concomitant]
     Indication: BACTERIAL INFECTION
     Route: 041
     Dates: start: 20081108, end: 20081111
  5. CYCLOSPORINE [Concomitant]
     Indication: PROPHYLAXIS
     Route: 065
     Dates: start: 20081108, end: 20081111
  6. CORTICOSTEROIDS (UNSPECIFIED) [Concomitant]
     Route: 065

REACTIONS (3)
  - ACUTE GRAFT VERSUS HOST DISEASE [None]
  - HAEMORRHAGE [None]
  - ORGAN FAILURE [None]
